FAERS Safety Report 4397167-0 (Version None)
Quarter: 2004Q3

REPORT INFORMATION
  Report Type: 
  Country: None (occurrence: None)
  Receive Date: 20040714
  Receipt Date: 20040702
  Transmission Date: 20050211
  Serious: Yes (Other)
  Sender: FDA-Public Use
  Company Number: IT-ROCHE-373003

PATIENT
  Age: 68 Year
  Sex: Female

DRUGS (2)
  1. TICLID [Suspect]
     Indication: ISCHAEMIC CARDIOMYOPATHY
     Route: 048
     Dates: start: 20040528, end: 20040605
  2. ALTIAZEM [Suspect]
     Indication: DRUG USE FOR UNKNOWN INDICATION
     Route: 048
     Dates: start: 20040601, end: 20040605

REACTIONS (2)
  - BRONCHOSTENOSIS [None]
  - DYSPNOEA [None]
